FAERS Safety Report 6029492-1 (Version None)
Quarter: 2008Q4

REPORT INFORMATION
  Report Type: 
  Country: None (occurrence: None)
  Receive Date: 20081222
  Receipt Date: 20080903
  Transmission Date: 20090506
  Serious: No
  Sender: FDA-Public Use
  Company Number: ALL1-2008-02492

PATIENT
  Age: 23 Year
  Sex: Male
  Weight: 59 kg

DRUGS (5)
  1. VYVANSE [Suspect]
     Indication: ATTENTION DEFICIT/HYPERACTIVITY DISORDER
     Dosage: 30 MG, 1X/DAY:QD, ORAL ; 30 MG, 1X/DAY:QD, ORAL
     Route: 048
     Dates: start: 20080701, end: 20080824
  2. VYVANSE [Suspect]
     Indication: ATTENTION DEFICIT/HYPERACTIVITY DISORDER
     Dosage: 30 MG, 1X/DAY:QD, ORAL ; 30 MG, 1X/DAY:QD, ORAL
     Route: 048
     Dates: start: 20080901
  3. LITHIUM CARBONATE [Concomitant]
  4. NEXIUM [Concomitant]
  5. TRAZODONE HCL [Concomitant]

REACTIONS (1)
  - GASTRIC INFECTION [None]
